FAERS Safety Report 9717524 (Version 2)
Quarter: 2015Q3

REPORT INFORMATION
  Report Type: Spontaneous
  Country: US (occurrence: US)
  Receive Date: 20131127
  Receipt Date: 20150803
  Transmission Date: 20151125
  Serious: No
  Sender: FDA-Public Use
  Company Number: US-GILEAD-2009-0020501

PATIENT
  Age: 75 Year
  Sex: Female

DRUGS (5)
  1. HCTZ/TRIAMTERENE [Concomitant]
  2. DIOVAN HCT [Concomitant]
     Active Substance: HYDROCHLOROTHIAZIDE\VALSARTAN
  3. WARFARIN [Concomitant]
     Active Substance: WARFARIN
  4. LETAIRIS [Suspect]
     Active Substance: AMBRISENTAN
     Indication: PULMONARY ARTERIAL HYPERTENSION
     Route: 048
  5. NORVASC [Concomitant]
     Active Substance: AMLODIPINE BESYLATE

REACTIONS (3)
  - Oedema peripheral [Unknown]
  - Nasal congestion [Unknown]
  - Fatigue [Unknown]
